FAERS Safety Report 9230043 (Version 1)
Quarter: 2013Q2

REPORT INFORMATION
  Report Type: Spontaneous
  Country: US (occurrence: None)
  Receive Date: 20130412
  Receipt Date: 20130412
  Transmission Date: 20140414
  Serious: Yes (Life-Threatening)
  Sender: FDA-Public Use
  Company Number: None

PATIENT
  Age: 65 Year
  Sex: Male
  Weight: 68.3 kg

DRUGS (15)
  1. HURRICAINE TOPICAL ANESTHETIC SP [Suspect]
     Indication: LOCAL ANAESTHESIA
     Dosage: 3 SPRAYS ONCE TOP
     Route: 061
  2. HURRICAINE TOPICAL ANESTHETIC SP [Suspect]
     Indication: ECHOCARDIOGRAM
     Dosage: 3 SPRAYS ONCE TOP
     Route: 061
  3. AMLODIPINE [Concomitant]
  4. ASPIRIN [Concomitant]
  5. CARVEDILOL [Concomitant]
  6. CLOPIDOGREL [Concomitant]
  7. ENALAPRIL [Concomitant]
  8. FENOFIBRATE [Concomitant]
  9. FENTANYL [Concomitant]
  10. HEPARIN [Concomitant]
  11. INSULIN ASPART [Concomitant]
  12. LIDOCAINE TOPICAL [Concomitant]
  13. MIDAZOLAM [Concomitant]
  14. PRAVASTATIN [Concomitant]
  15. SODIUM CHLORIDE NASAL [Concomitant]

REACTIONS (4)
  - Cyanosis [None]
  - Oxygen saturation decreased [None]
  - Therapeutic response decreased [None]
  - Methaemoglobinaemia [None]
